FAERS Safety Report 10403334 (Version 1)
Quarter: 2014Q3

REPORT INFORMATION
  Report Type: Spontaneous
  Country: IT (occurrence: IT)
  Receive Date: 20140822
  Receipt Date: 20140822
  Transmission Date: 20150326
  Serious: Yes (Other)
  Sender: FDA-Public Use
  Company Number: IT-TEVA-502303ISR

PATIENT
  Age: 65 Year
  Sex: Female

DRUGS (3)
  1. FLUOROURACILE TEVA [Suspect]
     Active Substance: FLUOROURACIL
     Indication: PANCREATIC CARCINOMA
     Dosage: 4238 MILLIGRAM DAILY;
     Route: 042
     Dates: start: 20140702, end: 20140702
  2. IRINOTECAN FRESENIUS [Interacting]
     Active Substance: IRINOTECAN
     Indication: PANCREATIC CARCINOMA
     Dosage: 272.3 MILLIGRAM DAILY;
     Route: 042
     Dates: start: 20140702, end: 20140702
  3. OXALIPLATINO ACCORD [Interacting]
     Active Substance: OXALIPLATIN
     Indication: PANCREATIC CARCINOMA
     Dosage: 128.6 MILLIGRAM DAILY;
     Route: 042
     Dates: start: 20140702, end: 20140702

REACTIONS (2)
  - Drug interaction [Recovering/Resolving]
  - Pancytopenia [Recovering/Resolving]

NARRATIVE: CASE EVENT DATE: 20140711
